FAERS Safety Report 5145591-0 (Version None)
Quarter: 2006Q4

REPORT INFORMATION
  Report Type: 
  Country: None (occurrence: None)
  Receive Date: 20061101
  Receipt Date: 20061020
  Transmission Date: 20070319
  Serious: Yes (Other)
  Sender: FDA-Public Use
  Company Number: M04-341-098

PATIENT
  Age: 55 Year
  Sex: Male
  Weight: 93 kg

DRUGS (8)
  1. VELCADE [Suspect]
     Indication: MULTIPLE MYELOMA
     Dosage: SEE IMAGE
     Route: 042
     Dates: start: 20031230, end: 20040305
  2. VELCADE [Suspect]
     Indication: MULTIPLE MYELOMA
     Dosage: SEE IMAGE
     Route: 042
     Dates: start: 20040316, end: 20040319
  3. VELCADE [Suspect]
     Indication: MULTIPLE MYELOMA
     Dosage: SEE IMAGE
     Route: 042
     Dates: start: 20040323, end: 20040326
  4. WARFARIN TABLET [Concomitant]
  5. ZOMETA SOLUTION (EXCEPT SYRUP) [Concomitant]
  6. PROCRIT [Concomitant]
  7. EPOGEN [Concomitant]
  8. NEXIUM [Concomitant]

REACTIONS (28)
  - AORTIC VALVE INCOMPETENCE [None]
  - BUNDLE BRANCH BLOCK [None]
  - CARDIAC VENTRICULAR DISORDER [None]
  - CONDITION AGGRAVATED [None]
  - DILATATION ATRIAL [None]
  - DILATATION VENTRICULAR [None]
  - DIZZINESS [None]
  - DRUG TOXICITY [None]
  - DYSPNOEA EXERTIONAL [None]
  - EJECTION FRACTION DECREASED [None]
  - ELECTROCARDIOGRAM POOR R-WAVE PROGRESSION [None]
  - ELECTROCARDIOGRAM QRS COMPLEX PROLONGED [None]
  - HEART SOUNDS ABNORMAL [None]
  - LOSS OF CONSCIOUSNESS [None]
  - MITRAL VALVE INCOMPETENCE [None]
  - MUSCLE TIGHTNESS [None]
  - NEUROPATHY PERIPHERAL [None]
  - PERICARDIAL EFFUSION [None]
  - PULMONARY ARTERIAL PRESSURE INCREASED [None]
  - PULMONARY HYPERTENSION [None]
  - PULMONARY VALVE INCOMPETENCE [None]
  - RIGHT VENTRICULAR SYSTOLIC PRESSURE DECREASED [None]
  - RIGHT VENTRICULAR SYSTOLIC PRESSURE INCREASED [None]
  - SYNCOPE [None]
  - THROMBOCYTOPENIA [None]
  - TRICUSPID VALVE INCOMPETENCE [None]
  - VENTRICULAR DYSFUNCTION [None]
  - VENTRICULAR HYPERTROPHY [None]
